FAERS Safety Report 13134486 (Version 1)
Quarter: 2017Q1

REPORT INFORMATION
  Report Type: Spontaneous
  Country: US (occurrence: US)
  Receive Date: 20170120
  Receipt Date: 20170120
  Transmission Date: 20170428
  Serious: No
  Sender: FDA-Public Use
  Company Number: US-JNJFOC-20161202790

PATIENT
  Sex: Male

DRUGS (6)
  1. TOPAMAX [Suspect]
     Active Substance: TOPIRAMATE
     Indication: SEIZURE
     Dosage: DOSE TAPERED
     Route: 048
     Dates: end: 201403
  2. TOPAMAX [Suspect]
     Active Substance: TOPIRAMATE
     Indication: AFFECT LABILITY
     Dosage: DOSE TAPERED
     Route: 048
     Dates: end: 201403
  3. TOPAMAX [Suspect]
     Active Substance: TOPIRAMATE
     Indication: MIGRAINE PROPHYLAXIS
     Dosage: DOSE TAPERED
     Route: 048
     Dates: end: 201403
  4. TOPAMAX [Suspect]
     Active Substance: TOPIRAMATE
     Indication: MIGRAINE PROPHYLAXIS
     Route: 048
  5. TOPAMAX [Suspect]
     Active Substance: TOPIRAMATE
     Indication: SEIZURE
     Route: 048
  6. TOPAMAX [Suspect]
     Active Substance: TOPIRAMATE
     Indication: AFFECT LABILITY
     Route: 048

REACTIONS (1)
  - Sedation [Recovering/Resolving]
